FAERS Safety Report 17269437 (Version 1)
Quarter: 2020Q1

REPORT INFORMATION
  Report Type: Spontaneous
  Country: ES (occurrence: ES)
  Receive Date: 20200114
  Receipt Date: 20200114
  Transmission Date: 20200409
  Serious: Yes (Other)
  Sender: FDA-Public Use
  Company Number: NVSC2020ES006878

PATIENT
  Age: 82 Year
  Sex: Female

DRUGS (6)
  1. DACORTIN [Concomitant]
     Active Substance: PREDNISONE
     Indication: PELVIC INFLAMMATORY DISEASE
     Route: 065
  2. COROPRES [Concomitant]
     Active Substance: CARVEDILOL
     Indication: SYSTOLIC DYSFUNCTION
     Route: 065
  3. CORLENTOR [Concomitant]
     Active Substance: IVABRADINE HYDROCHLORIDE
     Indication: SYSTOLIC DYSFUNCTION
     Route: 065
  4. ELECOR [Concomitant]
     Active Substance: EPLERENONE
     Indication: SYSTOLIC DYSFUNCTION
     Route: 065
  5. ENTRESTO [Suspect]
     Active Substance: SACUBITRIL\VALSARTAN
     Indication: SYSTOLIC DYSFUNCTION
     Dosage: UNK
     Route: 065
     Dates: start: 201911, end: 20200110
  6. SEGURIL [Concomitant]
     Active Substance: FUROSEMIDE
     Indication: SYSTOLIC DYSFUNCTION
     Route: 065

REACTIONS (2)
  - Hepatic function abnormal [Unknown]
  - Transaminases increased [Unknown]

NARRATIVE: CASE EVENT DATE: 201911
